FAERS Safety Report 4613019-2 (Version None)
Quarter: 2005Q1

REPORT INFORMATION
  Report Type: 
  Country: None (occurrence: None)
  Receive Date: 20050318
  Receipt Date: 20020516
  Transmission Date: 20050727
  Serious: Yes (Death, Disabling, Other)
  Sender: FDA-Public Use
  Company Number: US-MERCK-0205USA02001

PATIENT
  Age: 45 Year
  Sex: Female
  Weight: 64 kg

DRUGS (22)
  1. VIOXX [Suspect]
     Indication: PAIN
     Route: 048
     Dates: start: 20010101
  2. BACLOFEN [Concomitant]
     Route: 048
  3. ATIVAN [Concomitant]
     Indication: ANXIETY
     Route: 048
  4. SOMA [Concomitant]
     Route: 048
  5. WELLBUTRIN [Concomitant]
     Route: 048
  6. DULCOLAX [Concomitant]
     Route: 065
  7. TEGRETOL [Concomitant]
     Route: 048
  8. MS CONTIN [Concomitant]
     Route: 048
  9. COLACE [Concomitant]
     Route: 048
  10. VISTARIL [Concomitant]
     Indication: INSOMNIA
     Route: 048
  11. VISTARIL [Concomitant]
     Indication: NAUSEA
     Route: 048
  12. SEROQUEL [Concomitant]
     Route: 065
  13. SEROQUEL [Concomitant]
     Route: 048
  14. MEXILETINE HYDROCHLORIDE [Concomitant]
     Route: 048
  15. COUMADIN [Concomitant]
     Route: 048
  16. PERCOCET [Concomitant]
     Indication: PAIN
     Route: 048
  17. FLEET ENEMA [Concomitant]
     Route: 065
  18. MAGNESIA [MILK OF] [Concomitant]
     Route: 065
  19. COMPAZINE [Concomitant]
     Indication: NAUSEA
     Route: 065
  20. COMPAZINE [Concomitant]
     Indication: VOMITING
     Route: 065
  21. NEURONTIN [Concomitant]
     Route: 048
  22. ELAVIL [Concomitant]
     Route: 048

REACTIONS (9)
  - ARTHRODESIS [None]
  - CAROTID ARTERY STENOSIS [None]
  - CEREBROVASCULAR ACCIDENT [None]
  - DEATH [None]
  - INJURY [None]
  - NECK PAIN [None]
  - OEDEMA [None]
  - PAIN [None]
  - THERMAL BURN [None]
